FAERS Safety Report 5815446-4 (Version None)
Quarter: 2008Q3

REPORT INFORMATION
  Report Type: 
  Country: None (occurrence: None)
  Receive Date: 20080718
  Receipt Date: 20080708
  Transmission Date: 20090109
  Serious: Yes (Hospitalization)
  Sender: FDA-Public Use
  Company Number: CH-PFIZER INC-2008056571

PATIENT
  Age: 73 Year
  Sex: Male

DRUGS (4)
  1. XANAX [Suspect]
     Indication: DEPRESSION
     Dosage: FREQ:DAILY
     Route: 048
  2. XANAX [Suspect]
     Indication: ANXIETY
  3. CYMBALTA [Suspect]
     Indication: DEPRESSION
     Route: 048
     Dates: start: 20080515, end: 20080518
  4. CYMBALTA [Suspect]
     Indication: ANXIETY

REACTIONS (3)
  - HYPOTENSION [None]
  - MALAISE [None]
  - PRESYNCOPE [None]
